FAERS Safety Report 10457762 (Version 2)
Quarter: 2014Q3

REPORT INFORMATION
  Report Type: Spontaneous
  Country: US (occurrence: US)
  Receive Date: 20140916
  Receipt Date: 20140916
  Transmission Date: 20150326
  Serious: Yes (Hospitalization)
  Sender: FDA-Public Use
  Company Number: US-GLAXOSMITHKLINE-A0744557A

PATIENT
  Sex: Female
  Weight: 113.6 kg

DRUGS (1)
  1. AVANDIA [Suspect]
     Active Substance: ROSIGLITAZONE MALEATE
     Indication: TYPE 2 DIABETES MELLITUS
     Route: 048
     Dates: start: 20030115, end: 20050322

REACTIONS (3)
  - Hypertensive heart disease [Unknown]
  - Cardiac failure congestive [Unknown]
  - Chest pain [Unknown]
